FAERS Safety Report 9416684 (Version 1)
Quarter: 2013Q3

REPORT INFORMATION
  Report Type: Spontaneous
  Country: US (occurrence: US)
  Receive Date: 20130724
  Receipt Date: 20130724
  Transmission Date: 20140515
  Serious: Yes (Other)
  Sender: FDA-Public Use
  Company Number: US-UCBSA-092648

PATIENT
  Sex: Male

DRUGS (8)
  1. VIMPAT [Suspect]
     Indication: EPILEPSY
     Dates: start: 20111012, end: 201110
  2. VIMPAT [Suspect]
     Indication: EPILEPSY
     Dates: start: 201110, end: 201110
  3. VIMPAT [Suspect]
     Indication: EPILEPSY
     Dates: start: 201110, end: 2011
  4. VIMPAT [Suspect]
     Indication: EPILEPSY
     Dates: start: 2011
  5. KEPPRA [Suspect]
     Indication: EPILEPSY
  6. DEPAKOTE [Concomitant]
     Indication: EPILEPSY
  7. BANZEL [Concomitant]
     Indication: EPILEPSY
  8. BANZEL [Concomitant]
     Indication: EPILEPSY

REACTIONS (1)
  - Convulsion [Unknown]
